FAERS Safety Report 5944583-9 (Version None)
Quarter: 2008Q4

REPORT INFORMATION
  Report Type: 
  Country: None (occurrence: None)
  Receive Date: 20081107
  Receipt Date: 20081027
  Transmission Date: 20090506
  Serious: Yes (Disabling, Other)
  Sender: FDA-Public Use
  Company Number: CA-JNJFOC-20071205436

PATIENT
  Sex: Female
  Weight: 46 kg

DRUGS (10)
  1. REMICADE [Suspect]
     Indication: RHEUMATOID ARTHRITIS
     Dosage: 21 DOSES
     Route: 042
  2. METHOTREXATE [Concomitant]
     Route: 048
  3. CODEINE SUL TAB [Concomitant]
     Route: 048
  4. CODEINE CONTIN [Concomitant]
     Indication: PAIN MANAGEMENT
  5. ARAVA [Concomitant]
     Route: 048
  6. PREDNISONE TAB [Concomitant]
     Route: 048
  7. ELTROXIN [Concomitant]
  8. FOLIC ACID [Concomitant]
  9. GABAPENTIN [Concomitant]
  10. SULFA ANTIBIOTICS [Concomitant]
     Indication: LOCALISED INFECTION

REACTIONS (6)
  - FALL [None]
  - INFECTION SUSCEPTIBILITY INCREASED [None]
  - LOCALISED INFECTION [None]
  - LOWER RESPIRATORY TRACT INFECTION [None]
  - SKIN ULCER [None]
  - WEIGHT DECREASED [None]
